FAERS Safety Report 7297060-X (Version None)
Quarter: 2011Q1

REPORT INFORMATION
  Report Type: 
  Country: None (occurrence: None)
  Receive Date: 20110216
  Receipt Date: 20110210
  Transmission Date: 20110831
  Serious: Yes (Life-Threatening, Hospitalization)
  Sender: FDA-Public Use
  Company Number: GR-JNJFOC-20110103453

PATIENT
  Age: 33 Year
  Sex: Male

DRUGS (4)
  1. RISPERDAL [Suspect]
     Indication: PSYCHOTIC DISORDER
     Route: 048
  2. RISPERDAL [Suspect]
     Route: 048
  3. RISPERDAL [Suspect]
     Route: 048
  4. NOVORIS [Suspect]
     Indication: PSYCHOTIC DISORDER
     Route: 065

REACTIONS (5)
  - EPILEPSY [None]
  - THROMBOTIC THROMBOCYTOPENIC PURPURA [None]
  - DIZZINESS [None]
  - WEIGHT DECREASED [None]
  - HAEMATOCRIT DECREASED [None]
